FAERS Safety Report 10682183 (Version 10)
Quarter: 2019Q2

REPORT INFORMATION
  Report Type: Spontaneous
  Country: US (occurrence: US)
  Receive Date: 20141230
  Receipt Date: 20190613
  Transmission Date: 20190711
  Serious: Yes (Hospitalization, Other)
  Sender: FDA-Public Use
  Company Number: US-PFIZER INC-2014356990

PATIENT
  Age: 70 Year
  Sex: Female
  Weight: 65.76 kg

DRUGS (26)
  1. VITAMIN D3 [Concomitant]
     Active Substance: CHOLECALCIFEROL
     Dosage: 1000 IU, ONE CAPSULE DAILY
     Route: 048
     Dates: start: 2000
  2. NORCO [Concomitant]
     Active Substance: ACETAMINOPHEN\HYDROCODONE BITARTRATE
     Dosage: UNK
  3. ULTRAM [Concomitant]
     Active Substance: TRAMADOL HYDROCHLORIDE
     Dosage: UNK
  4. IMURAN [Concomitant]
     Active Substance: AZATHIOPRINE
     Indication: SYSTEMIC LUPUS ERYTHEMATOSUS
     Dosage: 50 MG ORAL TABLET HALF PILL EVERY DAY
     Route: 048
     Dates: start: 1998
  5. ASTELIN [Concomitant]
     Active Substance: AZELASTINE HYDROCHLORIDE
     Dosage: 2 SPRAYS EACH NOSTRIL
     Route: 045
  6. FLONASE [Concomitant]
     Active Substance: FLUTICASONE PROPIONATE
     Dosage: UNK
  7. ZOLOFT [Concomitant]
     Active Substance: SERTRALINE HYDROCHLORIDE
     Dosage: UNK
  8. CELEBREX [Suspect]
     Active Substance: CELECOXIB
     Indication: OSTEOPOROSIS
     Dosage: UNK, 1X/DAY
     Dates: start: 201412
  9. QUESTRAN [Concomitant]
     Active Substance: CHOLESTYRAMINE
     Indication: DIARRHOEA
     Dosage: UNK
     Dates: start: 2000
  10. IMDUR [Concomitant]
     Active Substance: ISOSORBIDE MONONITRATE
     Dosage: 30 MG ONE TABLET DAILY
     Route: 048
  11. KLONOPIN [Concomitant]
     Active Substance: CLONAZEPAM
     Dosage: 0.5 MG ONE TABLET TWICE A DAY (BID)
     Route: 048
     Dates: start: 2013
  12. CELEBREX [Suspect]
     Active Substance: CELECOXIB
     Dosage: 100 MG, 1X/DAY
  13. PLAQUENIL [Concomitant]
     Active Substance: HYDROXYCHLOROQUINE SULFATE
     Dosage: 200 MG, 2X/DAY
     Route: 048
     Dates: start: 1990
  14. FLOVENT DISKUS [Concomitant]
     Active Substance: FLUTICASONE PROPIONATE
     Dosage: 100 MCG INHALATION POWDER, 2 PUFFS TWICE A DAY (BID)
     Route: 055
  15. PLAQUENIL SULFATE [Concomitant]
     Active Substance: HYDROXYCHLOROQUINE SULFATE
     Dosage: ONE TABLET TWICE A DAY (BID)
     Route: 048
     Dates: start: 1990
  16. SERTRALINE [Concomitant]
     Active Substance: SERTRALINE HYDROCHLORIDE
     Dosage: 50 MG, ONE AT NIGHT
     Route: 048
     Dates: start: 2013
  17. IRON [Concomitant]
     Active Substance: IRON
     Dosage: UNK
  18. CELEBREX [Suspect]
     Active Substance: CELECOXIB
     Dosage: 100 MG, DAILY
     Route: 048
     Dates: start: 2013, end: 2014
  19. QUESTRAN [Concomitant]
     Active Substance: CHOLESTYRAMINE
     Indication: CHOLECYSTECTOMY
  20. RECLAST [Concomitant]
     Active Substance: ZOLEDRONIC ACID
     Indication: OSTEOPOROSIS
     Dosage: UNK (IV INJECTION ONCE EVERY 2 YEARS)
     Route: 042
  21. CALCIUM CARBONATE/VITAMIN D [Concomitant]
     Active Substance: CALCIUM CARBONATE\VITAMIN D
     Dosage: CALCIUM (AS CARBONATE) 500MG WITH VITAMIN D  400 INTL UNITS ORAL TABLET, CHEWABLE, ONE TABLET DAILY
     Route: 048
     Dates: start: 2000
  22. ZANTAC [Concomitant]
     Active Substance: RANITIDINE HYDROCHLORIDE
     Dosage: 150MG, ONE TABLET TWICE A DAY (BID)
     Route: 048
     Dates: start: 2015
  23. ZOFRAN [Concomitant]
     Active Substance: ONDANSETRON HYDROCHLORIDE
     Indication: NAUSEA
     Dosage: 4 MG, ONE EVERY 6 HOURS AS NEEDED (PRN)
     Route: 048
  24. COUMADIN [Concomitant]
     Active Substance: WARFARIN SODIUM
     Dosage: UNK
  25. CELEBREX [Suspect]
     Active Substance: CELECOXIB
     Indication: SYSTEMIC LUPUS ERYTHEMATOSUS
     Dosage: 100 MG, 1X/DAY
     Dates: start: 20151009
  26. ASPIRIN. [Concomitant]
     Active Substance: ASPIRIN
     Dosage: 325 MG, DAILY
     Route: 048

REACTIONS (16)
  - Drug withdrawal syndrome [Recovered/Resolved]
  - Sinusitis [Recovered/Resolved]
  - Gait inability [Not Recovered/Not Resolved]
  - Diarrhoea [Recovered/Resolved]
  - Thrombosis [Unknown]
  - Arthropathy [Unknown]
  - Pain [Not Recovered/Not Resolved]
  - Localised infection [Recovered/Resolved]
  - Gastroenteritis viral [Recovered/Resolved]
  - Muscle spasms [Recovered/Resolved]
  - Discomfort [Recovered/Resolved]
  - Femur fracture [Unknown]
  - Weight decreased [Recovering/Resolving]
  - Retching [Recovered/Resolved]
  - Peripheral swelling [Unknown]
  - Inflammation [Unknown]

NARRATIVE: CASE EVENT DATE: 20140919
